FAERS Safety Report 25885591 (Version 3)
Quarter: 2025Q4

REPORT INFORMATION
  Report Type: Spontaneous
  Country: CN (occurrence: CN)
  Receive Date: 20251006
  Receipt Date: 20251117
  Transmission Date: 20260117
  Serious: Yes (Other)
  Sender: NOVO NORDISK
  Company Number: CN-NOVOPROD-1530695

PATIENT
  Age: 44 Year
  Sex: Male
  Weight: 47 kg

DRUGS (3)
  1. NOVORAPID [Suspect]
     Active Substance: INSULIN ASPART
     Indication: Type 1 diabetes mellitus
     Dosage: 19 IU, QD (8U IN THE MORNING, 5U AT NOON, AND 6U IN THE EVENING)
     Dates: start: 2008
  2. NOVORAPID [Suspect]
     Active Substance: INSULIN ASPART
     Dosage: 5 IU
  3. INSULIN GLARGINE [Concomitant]
     Active Substance: INSULIN GLARGINE
     Indication: Type 1 diabetes mellitus
     Dosage: UNK
     Dates: start: 2008

REACTIONS (7)
  - Retinal haemorrhage [Unknown]
  - Cataract [Unknown]
  - Blindness unilateral [Unknown]
  - Diabetic nephropathy [Unknown]
  - Diabetic neuropathy [Unknown]
  - Oral disorder [Unknown]
  - Blood glucose increased [Unknown]

NARRATIVE: CASE EVENT DATE: 20100701
